FAERS Safety Report 7835807-1 (Version None)
Quarter: 2011Q4

REPORT INFORMATION
  Report Type: 
  Country: None (occurrence: None)
  Receive Date: 20111024
  Receipt Date: 20111011
  Transmission Date: 20120403
  Serious: Yes (Hospitalization)
  Sender: FDA-Public Use
  Company Number: US-GILEAD-2011-0035651

PATIENT

DRUGS (4)
  1. CHLORPHENIRAMINE MALEATE [Concomitant]
  2. AMOXICILLIN [Concomitant]
  3. TENOFOVIR DISOPROXIL FUMARATE [Suspect]
     Dates: start: 20090429, end: 20101012
  4. PHENOBARBITAL TAB [Concomitant]

REACTIONS (1)
  - ABORTION SPONTANEOUS [None]
